FAERS Safety Report 10329594 (Version 3)
Quarter: 2014Q4

REPORT INFORMATION
  Report Type: Spontaneous
  Country: JP (occurrence: JP)
  Receive Date: 20140721
  Receipt Date: 20141201
  Transmission Date: 20150528
  Serious: Yes (Death, Hospitalization)
  Sender: FDA-Public Use
  Company Number: JP-PFIZER INC-2014200633

PATIENT
  Age: 61 Year
  Sex: Male
  Weight: 56 kg

DRUGS (9)
  1. DECADRON [Concomitant]
     Active Substance: DEXAMETHASONE
     Dosage: UNK
     Dates: start: 20140702, end: 20140704
  2. CAMPTO [Suspect]
     Active Substance: IRINOTECAN
     Indication: PANCREATIC CARCINOMA
     Dosage: 240 MG (142.2 MG/M2), ONCE A DAY
     Route: 041
     Dates: start: 20140702, end: 20140702
  3. FUROSEMIDE. [Concomitant]
     Active Substance: FUROSEMIDE
     Dosage: UNK
     Dates: start: 20140715, end: 20140716
  4. MEROPEN [Concomitant]
     Active Substance: MEROPENEM
     Dosage: UNK
     Dates: start: 2014, end: 2014
  5. EMEND [Concomitant]
     Active Substance: APREPITANT
     Dosage: UNK
     Dates: start: 20140702, end: 20140704
  6. LEVOFOLINATE CALCIUM [Concomitant]
     Active Substance: LEUCOVORIN CALCIUM
     Indication: PANCREATIC CARCINOMA
     Dosage: 300 MG/BODY (177.7 MG/M2)
     Dates: start: 20140702, end: 20140702
  7. 5-FU [Suspect]
     Active Substance: FLUOROURACIL
     Indication: PANCREATIC CARCINOMA
     Dosage: 4000 MG (2369.7 MG/M2), CONTINUOUS INFUSION ONCE IN 2 DAYS
     Route: 041
     Dates: start: 20140702, end: 20140702
  8. RAMOSETRON HYDROCHLORIDE [Concomitant]
     Active Substance: RAMOSETRON HYDROCHLORIDE
     Dosage: UNK
     Dates: start: 20140702, end: 20140702
  9. ELPLAT [Suspect]
     Active Substance: OXALIPLATIN
     Indication: PANCREATIC CARCINOMA
     Dosage: 125 MG (74.1 MG/M2), ONCE A DAY
     Route: 041
     Dates: start: 20140702, end: 20140702

REACTIONS (6)
  - Infection [Fatal]
  - Septic shock [Recovering/Resolving]
  - Disseminated intravascular coagulation [Fatal]
  - Ileus [Not Recovered/Not Resolved]
  - Febrile neutropenia [Recovering/Resolving]
  - Diarrhoea [Recovered/Resolved]

NARRATIVE: CASE EVENT DATE: 20140710
